FAERS Safety Report 6566221-7 (Version None)
Quarter: 2010Q1

REPORT INFORMATION
  Report Type: 
  Country: None (occurrence: None)
  Receive Date: 20100202
  Receipt Date: 20100122
  Transmission Date: 20100710
  Serious: Yes (Hospitalization, Disabling)
  Sender: FDA-Public Use
  Company Number: JP-PFIZER INC-2009297326

PATIENT
  Age: 62 Year
  Sex: Female
  Weight: 53 kg

DRUGS (12)
  1. LIPITOR [Suspect]
     Dosage: 10 MG, DAILY
     Route: 048
  2. PROGRAF [Interacting]
     Indication: LUPUS NEPHRITIS
     Dosage: 3 MG, DAILY
     Route: 048
     Dates: start: 20081211, end: 20090108
  3. PREDNISOLONE [Concomitant]
     Dosage: UNK
     Route: 048
  4. PARIET [Concomitant]
     Dosage: UNK
     Route: 048
  5. AMLODIPINE [Concomitant]
     Dosage: UNK
     Route: 048
  6. ALFAROL [Concomitant]
     Dosage: UNK
     Route: 048
  7. MUCOSTA [Concomitant]
     Dosage: UNK
     Route: 048
  8. URSO 250 [Concomitant]
     Dosage: UNK
     Route: 048
  9. PLETAL [Concomitant]
     Dosage: UNK
     Route: 048
  10. ALENDRONATE SODIUM [Concomitant]
     Dosage: UNK
     Route: 048
  11. WARFARIN [Concomitant]
     Dosage: UNK
     Route: 048
  12. NEORAL [Concomitant]
     Dosage: UNK
     Dates: end: 20081210

REACTIONS (5)
  - BETA 2 MICROGLOBULIN URINE INCREASED [None]
  - BETA-N-ACETYL-D-GLUCOSAMINIDASE INCREASED [None]
  - BLOOD CREATINE PHOSPHOKINASE INCREASED [None]
  - BLOOD LACTATE DEHYDROGENASE INCREASED [None]
  - DRUG INTERACTION [None]
